FAERS Safety Report 20129000 (Version 2)
Quarter: 2021Q4

REPORT INFORMATION
  Report Type: Spontaneous
  Country: JP (occurrence: JP)
  Receive Date: 20211130
  Receipt Date: 20211208
  Transmission Date: 20220303
  Serious: No
  Sender: FDA-Public Use
  Company Number: JP-RECORDATI-2021004862

PATIENT

DRUGS (12)
  1. ISTURISA [Suspect]
     Active Substance: OSILODROSTAT PHOSPHATE
     Indication: Cushing^s syndrome
     Dosage: 1 MILLIGRAM, BID
     Route: 048
  2. ISTURISA [Suspect]
     Active Substance: OSILODROSTAT PHOSPHATE
     Dosage: 2 MILLIGRAM, BID
     Route: 048
  3. ISTURISA [Suspect]
     Active Substance: OSILODROSTAT PHOSPHATE
     Dosage: 3 MILLIGRAM, BID
     Route: 048
  4. ISTURISA [Suspect]
     Active Substance: OSILODROSTAT PHOSPHATE
     Dosage: 4 MILLIGRAM, BID
     Route: 048
     Dates: start: 20210705
  5. ISTURISA [Suspect]
     Active Substance: OSILODROSTAT PHOSPHATE
     Dosage: 5 MILLIGRAM, BID
     Route: 048
  6. SIGNIFOR LAR [Suspect]
     Active Substance: PASIREOTIDE PAMOATE
     Indication: Pituitary-dependent Cushing^s syndrome
     Dosage: UNK
     Route: 030
  7. SIGNIFOR LAR [Suspect]
     Active Substance: PASIREOTIDE PAMOATE
     Dosage: 40 MILLIGRAM
     Route: 030
     Dates: start: 2019
  8. METYRAPONE [Suspect]
     Active Substance: METYRAPONE
     Indication: Cortisol free urine abnormal
     Dosage: UNK
     Dates: start: 2019
  9. METYRAPONE [Suspect]
     Active Substance: METYRAPONE
     Dosage: 2500 MICROGRAM
     Dates: start: 2019
  10. METYRAPONE [Suspect]
     Active Substance: METYRAPONE
     Dosage: 1500 MILLIGRAM
     Dates: start: 2019
  11. TRILOSTANE [Suspect]
     Active Substance: TRILOSTANE
     Indication: Pituitary-dependent Cushing^s syndrome
     Dosage: 360 MILLIGRAM
  12. TRILOSTANE [Suspect]
     Active Substance: TRILOSTANE
     Dosage: 180 MILLIGRAM
     Dates: start: 20210705

REACTIONS (1)
  - No adverse event [Recovered/Resolved]
